FAERS Safety Report 25761436 (Version 2)
Quarter: 2025Q4

REPORT INFORMATION
  Report Type: Spontaneous
  Country: US (occurrence: US)
  Receive Date: 20250904
  Receipt Date: 20251021
  Transmission Date: 20260118
  Serious: No
  Sender: PFIZER
  Company Number: US-PFIZER INC-202500171118

PATIENT
  Age: 18 Year
  Sex: Male
  Weight: 83.46 kg

DRUGS (4)
  1. GENOTROPIN [Suspect]
     Active Substance: SOMATROPIN
     Indication: Hypothalamo-pituitary disorder
     Dosage: 4.0 MG, ONCE AT BEDTIME EVERY DAY
  2. LEVOTHYROXINE [Concomitant]
     Active Substance: LEVOTHYROXINE
     Indication: Hypothalamo-pituitary disorder
     Dosage: 100 UG
  3. HYDROCORTISONE [Concomitant]
     Active Substance: HYDROCORTISONE
     Indication: Adrenal insufficiency
     Dosage: 3 TIMES A DAY, FIRST DOSE IS 7.5 MILLIGRAM, SECOND AND THIRD DOSES ARE 5 MILLIGRAM ^A PIECE^
  4. HYDROCORTISONE [Concomitant]
     Active Substance: HYDROCORTISONE
     Dosage: 3 TIMES A DAY, FIRST DOSE IS 7.5 MILLIGRAM, SECOND AND THIRD DOSES ARE 5 MILLIGRAM ^A PIECE^

REACTIONS (2)
  - Device information output issue [Unknown]
  - Device mechanical issue [Unknown]
